FAERS Safety Report 19808443 (Version 1)
Quarter: 2021Q3

REPORT INFORMATION
  Report Type: Spontaneous
  Country: DE (occurrence: DE)
  Receive Date: 20210909
  Receipt Date: 20210909
  Transmission Date: 20211014
  Serious: Yes (Other)
  Sender: FDA-Public Use
  Company Number: DE-ALKEM LABORATORIES LIMITED-DE-ALKEM-2021-05077

PATIENT
  Age: 31 Year
  Sex: Female

DRUGS (1)
  1. CEFUROXIME AXETIL. [Suspect]
     Active Substance: CEFUROXIME AXETIL
     Indication: ABSCESS
     Dosage: 500 MILLIGRAM
     Route: 065

REACTIONS (4)
  - Dizziness [Unknown]
  - Hallucination [Unknown]
  - Euphoric mood [Unknown]
  - Dysarthria [Unknown]

NARRATIVE: CASE EVENT DATE: 20210803
